FAERS Safety Report 20538018 (Version 1)
Quarter: 2022Q1

REPORT INFORMATION
  Report Type: Spontaneous
  Country: US (occurrence: None)
  Receive Date: 20220301
  Receipt Date: 20220301
  Transmission Date: 20220424
  Serious: Yes (Hospitalization)
  Sender: FDA-Public Use
  Company Number: None

PATIENT
  Age: 74 Year
  Sex: Female
  Weight: 67.5 kg

DRUGS (2)
  1. TRULICITY [Suspect]
     Active Substance: DULAGLUTIDE
     Indication: Diabetes mellitus
     Dosage: OTHER FREQUENCY : WEEKLY;?
     Route: 058
     Dates: start: 20220225, end: 20220301
  2. TRULICITY [Concomitant]
     Active Substance: DULAGLUTIDE
     Dates: start: 20220225, end: 20220301

REACTIONS (7)
  - Nausea [None]
  - Vomiting [None]
  - Electrolyte imbalance [None]
  - Hyponatraemia [None]
  - Hypomagnesaemia [None]
  - Hypokalaemia [None]
  - Wrong technique in device usage process [None]

NARRATIVE: CASE EVENT DATE: 20220228
